FAERS Safety Report 7731382-0 (Version None)
Quarter: 2011Q3

REPORT INFORMATION
  Report Type: 
  Country: None (occurrence: None)
  Receive Date: 20110906
  Receipt Date: 20110830
  Transmission Date: 20111222
  Serious: Yes (Death)
  Sender: FDA-Public Use
  Company Number: US-PFIZER INC-US-WYE-H16335010

PATIENT
  Sex: Male

DRUGS (1)
  1. TORISEL [Suspect]
     Dosage: NOT PROVIDED
     Route: 065
     Dates: start: 20100601

REACTIONS (4)
  - FALL [None]
  - DEATH [None]
  - HYPOAESTHESIA [None]
  - ASTHENIA [None]
